FAERS Safety Report 9365147 (Version 2)
Quarter: 2014Q2

REPORT INFORMATION
  Report Type: Spontaneous
  Country: DK (occurrence: DK)
  Receive Date: 20130624
  Receipt Date: 20140428
  Transmission Date: 20141212
  Serious: Yes (Hospitalization, Other)
  Sender: FDA-Public Use
  Company Number: PHHY2013DK004697

PATIENT
  Age: 65 Year
  Sex: Female
  Weight: 60 kg

DRUGS (7)
  1. METHOTREXATE [Suspect]
     Indication: RHEUMATOID ARTHRITIS
     Dosage: 15 MG, QW
     Route: 058
     Dates: start: 20080616, end: 20100217
  2. METHOTREXATE [Suspect]
     Dosage: 15 MG, QW
     Route: 058
     Dates: start: 20100721, end: 20120217
  3. HUMIRA [Suspect]
     Indication: RHEUMATOID ARTHRITIS
     Dosage: 40 MG, BIW
     Dates: start: 20080225, end: 20120711
  4. HUMIRA [Suspect]
     Dosage: 40 MG, EVERY OTHER WEEK
     Dates: start: 20080225, end: 20120711
  5. HYDROXYCHLOROQUINE [Concomitant]
     Indication: RHEUMATOID ARTHRITIS
     Dates: start: 20081211, end: 20090602
  6. SALAZOPYRIN [Concomitant]
     Indication: RHEUMATOID ARTHRITIS
     Dates: start: 20081211, end: 20090602
  7. METHOTREXATE SODIUM [Concomitant]
     Indication: RHEUMATOID ARTHRITIS
     Route: 048
     Dates: start: 20080225, end: 20080615

REACTIONS (5)
  - Eczema infected [Recovered/Resolved]
  - Dermatitis [Unknown]
  - Skin plaque [Unknown]
  - Hypersensitivity vasculitis [Unknown]
  - Pruritus [Unknown]
